FAERS Safety Report 4291434-7 (Version None)
Quarter: 2004Q1

REPORT INFORMATION
  Report Type: 
  Country: None (occurrence: None)
  Receive Date: 20040211
  Receipt Date: 20031112
  Transmission Date: 20041129
  Serious: Yes (Life-Threatening, Hospitalization)
  Sender: FDA-Public Use
  Company Number: US-BRISTOL-MYERS SQUIBB COMPANY-12434080

PATIENT
  Age: 22 Year
  Sex: Female
  Weight: 67 kg

DRUGS (5)
  1. ABILIFY [Suspect]
     Indication: BIPOLAR DISORDER
     Dosage: THERAPY PRESCRIBED APPROX 12-OCT-03;PT NON COMPLIANT,BEGAN THERAPY UPON HOSP 28-OCT-03
     Route: 048
     Dates: start: 20031001
  2. DEPAKOTE [Concomitant]
     Dosage: SINCE 15 YEARS OLD
  3. WELLBUTRIN SR [Concomitant]
     Dosage: ON/OFF SINCE 15 YRS OLD, TWICE DAILY FOR SEVERAL UEARS
  4. LAMICTAL [Concomitant]
     Dates: start: 20030830
  5. MINOCYCLINE HCL [Concomitant]
     Dosage: USED FOR 4 TO 5 YEARS

REACTIONS (8)
  - AGGRESSION [None]
  - AGITATION [None]
  - DEPRESSED MOOD [None]
  - IRRITABILITY [None]
  - MANIA [None]
  - MOOD SWINGS [None]
  - SUICIDE ATTEMPT [None]
  - TREATMENT NONCOMPLIANCE [None]
